FAERS Safety Report 5604870-0 (Version None)
Quarter: 2008Q1

REPORT INFORMATION
  Report Type: 
  Country: None (occurrence: None)
  Receive Date: 20080123
  Receipt Date: 20080110
  Transmission Date: 20080703
  Serious: Yes (Hospitalization)
  Sender: FDA-Public Use
  Company Number: 230388J08USA

PATIENT
  Age: 55 Year
  Sex: Female
  Weight: 71.6683 kg

DRUGS (6)
  1. REBIF [Suspect]
     Indication: MULTIPLE SCLEROSIS
     Dosage: 44 MCG, 3 IN 1 WEEKS, SUBCUTANEOUS
     Route: 058
     Dates: start: 20070502, end: 20071130
  2. REBIF [Suspect]
     Indication: MULTIPLE SCLEROSIS
     Dosage: 44 MCG, 3 IN 1 WEEKS, SUBCUTANEOUS
     Route: 058
     Dates: start: 20071201, end: 20071201
  3. NEXIUM [Concomitant]
  4. NITROSPRAY (ISOSORBIDE DINITRATE) [Concomitant]
  5. MORPHINE SULFATE [Concomitant]
  6. UNSPECIFIED MEDICATIONS (ALL OTHER THERAPEUTIC PRODUCTS) [Concomitant]

REACTIONS (4)
  - CHEST PAIN [None]
  - DEHYDRATION [None]
  - MALAISE [None]
  - VOMITING [None]
